FAERS Safety Report 4672483-3 (Version None)
Quarter: 2005Q2

REPORT INFORMATION
  Report Type: 
  Country: None (occurrence: None)
  Receive Date: 20050524
  Receipt Date: 20050419
  Transmission Date: 20051028
  Serious: Yes (Life-Threatening, Hospitalization)
  Sender: FDA-Public Use
  Company Number: AU-BOEHRINGER INGELHEIM PHARMACEUTICALS, INC.-2005-BP-06450AU

PATIENT
  Sex: Male
  Weight: 105 kg

DRUGS (5)
  1. ASASANTIN SR (CAPSULE, LONG ACTING) [Suspect]
     Indication: TRANSIENT ISCHAEMIC ATTACK
     Dosage: 400MG/50MG
     Route: 048
     Dates: start: 20030701, end: 20050301
  2. LIPITOR [Concomitant]
  3. DILTIAZEM [Concomitant]
  4. PARACETAMOL [Concomitant]
  5. CAPTOPRIL [Concomitant]

REACTIONS (2)
  - DUODENAL ULCER HAEMORRHAGE [None]
  - HAEMOGLOBIN DECREASED [None]
